FAERS Safety Report 5341668-5 (Version None)
Quarter: 2007Q2

REPORT INFORMATION
  Report Type: 
  Country: None (occurrence: None)
  Receive Date: 20070601
  Receipt Date: 20070530
  Transmission Date: 20071010
  Serious: Yes (Hospitalization)
  Sender: FDA-Public Use
  Company Number: FR-BRISTOL-MYERS SQUIBB COMPANY-13788765

PATIENT
  Age: 55 Year
  Sex: Female

DRUGS (2)
  1. DASATINIB [Suspect]
     Indication: BREAST CANCER
     Dosage: DASATINIB 2600 DF PO 11-MAY-2007 TO 23-MAY-2007.
     Route: 048
     Dates: start: 20070511, end: 20070523
  2. DURAGESIC-100 [Concomitant]

REACTIONS (3)
  - HAEMOPTYSIS [None]
  - MYOPERICARDITIS [None]
  - RESPIRATORY FAILURE [None]
